FAERS Safety Report 8477589-9 (Version None)
Quarter: 2012Q2

REPORT INFORMATION
  Report Type: 
  Country: None (occurrence: None)
  Receive Date: 20120626
  Receipt Date: 20120626
  Transmission Date: 20120825
  Serious: Yes (Hospitalization)
  Sender: FDA-Public Use
  Company Number: None

PATIENT
  Age: 80 Year
  Sex: Male
  Weight: 98 kg

DRUGS (8)
  1. ALLOPURINOL [Concomitant]
  2. ATENOLOL [Concomitant]
  3. SIMVASTATIN [Concomitant]
  4. ASPIRIN [Suspect]
     Dosage: 81MG DAILY PO }6 MONTHS
     Route: 048
  5. DOXAZOSIN MESYLATE [Concomitant]
  6. DIOVAN [Concomitant]
  7. VITAMIN B-12 [Concomitant]
  8. PRADAXA [Suspect]
     Indication: CEREBROVASCULAR ACCIDENT PROPHYLAXIS
     Dosage: 150MG BID PO }6 MONTHS
     Route: 048

REACTIONS (2)
  - SHOCK HAEMORRHAGIC [None]
  - FEMUR FRACTURE [None]
